FAERS Safety Report 17052266 (Version 1)
Quarter: 2019Q4

REPORT INFORMATION
  Report Type: Spontaneous
  Country: US (occurrence: US)
  Receive Date: 20191120
  Receipt Date: 20191120
  Transmission Date: 20200122
  Serious: No
  Sender: FDA-Public Use
  Company Number: US-HORIZON-RAV-0368-2019

PATIENT
  Age: 18 Year
  Sex: Female

DRUGS (1)
  1. RAVICTI [Suspect]
     Active Substance: GLYCEROL PHENYLBUTYRATE
     Indication: UREA CYCLE DISORDER
     Dosage: 5ML ORAL 3 TIMES A DAY
     Route: 048

REACTIONS (2)
  - Malaise [Unknown]
  - Extra dose administered [Unknown]
